FAERS Safety Report 7621285-4 (Version None)
Quarter: 2011Q3

REPORT INFORMATION
  Report Type: 
  Country: None (occurrence: None)
  Receive Date: 20110719
  Receipt Date: 20110714
  Transmission Date: 20111222
  Serious: Yes (Other)
  Sender: FDA-Public Use
  Company Number: US-ABBOTT-10P-163-0681720-00

PATIENT
  Age: 39 Year
  Sex: Female

DRUGS (5)
  1. METFORMIN HCL [Concomitant]
     Indication: DIABETES MELLITUS
  2. HUMIRA [Suspect]
     Indication: PSORIATIC ARTHROPATHY
     Dates: start: 20090901
  3. HUMIRA [Suspect]
  4. ATIVAN [Concomitant]
     Indication: ANXIETY
  5. METHYLDOPA [Concomitant]
     Indication: HYPERTENSION

REACTIONS (2)
  - ABORTION SPONTANEOUS [None]
  - PSORIATIC ARTHROPATHY [None]
